FAERS Safety Report 5859120-7 (Version None)
Quarter: 2008Q3

REPORT INFORMATION
  Report Type: 
  Country: None (occurrence: None)
  Receive Date: 20080827
  Receipt Date: 20080823
  Transmission Date: 20090109
  Serious: Yes (Death, Other)
  Sender: FDA-Public Use
  Company Number: PHEH2004US12587

PATIENT
  Age: 47 Year
  Sex: Male

DRUGS (2)
  1. GLEEVEC [Suspect]
     Indication: ACUTE LYMPHOCYTIC LEUKAEMIA
     Dosage: UNK
  2. GLEEVEC [Suspect]
     Dosage: 800 MG, UNK

REACTIONS (5)
  - BONE MARROW TRANSPLANT [None]
  - DRUG RESISTANCE [None]
  - LEUKAEMIA RECURRENT [None]
  - PNEUMONIA [None]
  - TRANSPLANT FAILURE [None]
